FAERS Safety Report 10068037 (Version 2)
Quarter: 2014Q2

REPORT INFORMATION
  Report Type: Spontaneous
  Country: CA (occurrence: CA)
  Receive Date: 20140409
  Receipt Date: 20140519
  Transmission Date: 20141212
  Serious: Yes (Other)
  Sender: FDA-Public Use
  Company Number: CA-JNJFOC-20140404396

PATIENT
  Sex: Female

DRUGS (8)
  1. INFLIXIMAB, RECOMBINANT [Suspect]
     Indication: JUVENILE IDIOPATHIC ARTHRITIS
     Route: 042
  2. METHOTREXATE [Suspect]
     Indication: JUVENILE IDIOPATHIC ARTHRITIS
     Route: 065
  3. CYCLOSPORINE [Suspect]
     Indication: JUVENILE IDIOPATHIC ARTHRITIS
     Route: 065
  4. ETOPOSIDE [Suspect]
     Indication: JUVENILE IDIOPATHIC ARTHRITIS
     Dosage: 6 CYCLES OVER 34 DAYS.
     Route: 065
  5. THALIDOMIDE [Suspect]
     Indication: JUVENILE IDIOPATHIC ARTHRITIS
     Route: 065
  6. ETANERCEPT [Suspect]
     Indication: JUVENILE IDIOPATHIC ARTHRITIS
     Route: 065
  7. ANAKINRA [Suspect]
     Indication: JUVENILE IDIOPATHIC ARTHRITIS
     Route: 065
  8. TACROLIMUS [Suspect]
     Indication: JUVENILE IDIOPATHIC ARTHRITIS
     Route: 065

REACTIONS (2)
  - Hepatosplenic T-cell lymphoma [Unknown]
  - Off label use [Unknown]
